FAERS Safety Report 23452312 (Version 1)
Quarter: 2024Q1

REPORT INFORMATION
  Report Type: Spontaneous
  Country: US (occurrence: None)
  Receive Date: 20240127
  Receipt Date: 20240127
  Transmission Date: 20240410
  Serious: Yes (Hospitalization)
  Sender: FDA-Public Use
  Company Number: None

PATIENT
  Age: 62 Year
  Sex: Female
  Weight: 77.4 kg

DRUGS (8)
  1. MIRTAZAPINE [Suspect]
     Active Substance: MIRTAZAPINE
     Indication: Depression
     Dosage: OTHER QUANTITY : 30 TABLET(S);?FREQUENCY : AT BEDTIME;?
     Route: 048
     Dates: start: 20240120, end: 20240120
  2. LOSARTAN [Suspect]
     Active Substance: LOSARTAN
  3. Carvdilol [Concomitant]
  4. Levothroxin [Concomitant]
  5. PRILOSEC [Concomitant]
     Active Substance: OMEPRAZOLE MAGNESIUM
  6. LUNESTA [Concomitant]
     Active Substance: ESZOPICLONE
  7. MAGNESIUM [Concomitant]
     Active Substance: MAGNESIUM
  8. VITAMIN D [Suspect]
     Active Substance: VITAMIN D NOS

REACTIONS (8)
  - Insomnia [None]
  - Loss of consciousness [None]
  - Loss of consciousness [None]
  - Fall [None]
  - Tooth fracture [None]
  - Lip injury [None]
  - Contusion [None]
  - Skin haemorrhage [None]

NARRATIVE: CASE EVENT DATE: 20240120
